FAERS Safety Report 9115082 (Version 1)
Quarter: 2013Q1

REPORT INFORMATION
  Report Type: Spontaneous
  Country: US (occurrence: US)
  Receive Date: 20130225
  Receipt Date: 20130225
  Transmission Date: 20140127
  Serious: Yes (Hospitalization)
  Sender: FDA-Public Use
  Company Number: US-COVIDIEN/TYCO HEALTHCARE/MALLINCKRODT-T201204578

PATIENT
  Sex: Female

DRUGS (1)
  1. GABLOFEN [Suspect]
     Dosage: 151 MCG/DAY
     Route: 037

REACTIONS (4)
  - Muscle spasticity [Unknown]
  - Hypertonia [Unknown]
  - Drug ineffective [Unknown]
  - Device failure [Unknown]
